FAERS Safety Report 8973547 (Version 1)
Quarter: 2012Q4

REPORT INFORMATION
  Report Type: 
  Country: US (occurrence: US)
  Receive Date: 20121218
  Receipt Date: 20121218
  Transmission Date: 20130627
  Serious: No
  Sender: FDA-Public Use
  Company Number: US-BRISTOL-MYERS SQUIBB COMPANY-16392243

PATIENT
  Age: 61 Year
  Sex: Male
  Weight: 95 kg

DRUGS (4)
  1. ABILIFY TABS 5 MG [Suspect]
     Indication: BIPOLAR DISORDER
     Dosage: Abilify 5mg once daily for a week then increased to 10mg once daily.
  2. TOPAMAX [Concomitant]
  3. LITHIUM [Concomitant]
  4. DEPAKOTE [Concomitant]

REACTIONS (2)
  - Dry mouth [Not Recovered/Not Resolved]
  - Drug ineffective [Unknown]
